FAERS Safety Report 21302802 (Version 1)
Quarter: 2022Q3

REPORT INFORMATION
  Report Type: Spontaneous
  Country: US (occurrence: None)
  Receive Date: 20220907
  Receipt Date: 20220907
  Transmission Date: 20221026
  Serious: Yes (Hospitalization)
  Sender: FDA-Public Use
  Company Number: None

PATIENT
  Age: 6 Year
  Sex: Female
  Weight: 106.14 kg

DRUGS (19)
  1. IBRANCE [Suspect]
     Active Substance: PALBOCICLIB
     Indication: Breast cancer female
     Dosage: OTHER FREQUENCY : 21D OF 28 DAYS;?
     Route: 048
     Dates: start: 202207
  2. ALLOPURINOL [Concomitant]
     Active Substance: ALLOPURINOL
  3. AMLODIPINE [Concomitant]
     Active Substance: AMLODIPINE BESYLATE
  4. ANASTROZOLE [Concomitant]
     Active Substance: ANASTROZOLE
  5. BASAGLAR [Concomitant]
     Active Substance: INSULIN GLARGINE
  6. DULOXETINE [Concomitant]
     Active Substance: DULOXETINE
  7. FERROUS SULFATE [Concomitant]
     Active Substance: FERROUS SULFATE
  8. ASPIRIN [Concomitant]
     Active Substance: ASPIRIN
  9. IBUPROFEN [Concomitant]
     Active Substance: IBUPROFEN
  10. CALCIUM 600+D [Concomitant]
  11. LOSARTAN [Concomitant]
     Active Substance: LOSARTAN
  12. METFORMIN [Concomitant]
     Active Substance: METFORMIN HYDROCHLORIDE
  13. METOPROLOL [Concomitant]
     Active Substance: METOPROLOL
  14. MULTIVITAM W/MINERALS [Concomitant]
  15. SIMVASTATIN [Concomitant]
  16. TRAMADOL [Concomitant]
     Active Substance: TRAMADOL
  17. VITAMIN B12 [Concomitant]
     Active Substance: CYANOCOBALAMIN
  18. VITAMIN E [Concomitant]
     Active Substance: .ALPHA.-TOCOPHEROL
  19. ZINC [Concomitant]
     Active Substance: ZINC

REACTIONS (2)
  - Metastases to kidney [None]
  - Therapy interrupted [None]
